FAERS Safety Report 7996085-6 (Version None)
Quarter: 2011Q4

REPORT INFORMATION
  Report Type: 
  Country: None (occurrence: None)
  Receive Date: 20111220
  Receipt Date: 20111212
  Transmission Date: 20120403
  Serious: Yes (Other)
  Sender: FDA-Public Use
  Company Number: PHEH2008US03454

PATIENT
  Sex: Male
  Weight: 88.435 kg

DRUGS (9)
  1. TAXOTERE [Concomitant]
  2. ZOMETA [Suspect]
     Indication: OSTEOPOROSIS
     Dates: start: 20071201, end: 20080101
  3. BENICAR [Concomitant]
  4. FLAGYL [Concomitant]
  5. LORTAB [Concomitant]
  6. FORADIL                                 /USA/ [Concomitant]
  7. PERIDEX [Concomitant]
  8. VITAMIN B NOS [Concomitant]
  9. AVASTIN [Concomitant]

REACTIONS (29)
  - PULMONARY OEDEMA [None]
  - ANXIETY [None]
  - ABDOMINAL PAIN [None]
  - GENERAL PHYSICAL HEALTH DETERIORATION [None]
  - EXPOSED BONE IN JAW [None]
  - DIARRHOEA [None]
  - VERTEBRAL FORAMINAL STENOSIS [None]
  - FATIGUE [None]
  - CARDIOMEGALY [None]
  - PROSTATOMEGALY [None]
  - HAEMOGLOBIN DECREASED [None]
  - BACK PAIN [None]
  - CHRONIC OBSTRUCTIVE PULMONARY DISEASE [None]
  - BLOOD CHOLESTEROL INCREASED [None]
  - DYSPNOEA EXERTIONAL [None]
  - OSTEOARTHRITIS [None]
  - PLEURAL EFFUSION [None]
  - PERICARDIAL EFFUSION [None]
  - INTERVERTEBRAL DISC PROTRUSION [None]
  - ARTHRALGIA [None]
  - OSTEONECROSIS OF JAW [None]
  - PULMONARY HYPERTENSION [None]
  - RED BLOOD CELL COUNT DECREASED [None]
  - EMPHYSEMA [None]
  - LUNG CANCER METASTATIC [None]
  - NEOPLASM MALIGNANT [None]
  - ATELECTASIS [None]
  - PAIN [None]
  - ANAEMIA [None]
